FAERS Safety Report 11687191 (Version 2)
Quarter: 2016Q1

REPORT INFORMATION
  Report Type: Spontaneous
  Country: US (occurrence: US)
  Receive Date: 20151030
  Receipt Date: 20160226
  Transmission Date: 20160525
  Serious: Yes (Death, Life-Threatening)
  Sender: FDA-Public Use
  Company Number: US-ASTRAZENECA-2015SF04136

PATIENT
  Age: 752 Month
  Sex: Female
  Weight: 60 kg

DRUGS (4)
  1. OLAPARIB [Suspect]
     Active Substance: OLAPARIB
     Indication: OVARIAN CANCER STAGE III
     Route: 048
  2. OLAPARIB [Suspect]
     Active Substance: OLAPARIB
     Indication: OVARIAN CANCER STAGE III
     Dosage: 200MG-AM 300MG-PM
     Route: 048
     Dates: start: 20150518
  3. OLAPARIB [Suspect]
     Active Substance: OLAPARIB
     Indication: OVARIAN CANCER STAGE III
     Route: 048
     Dates: start: 201502, end: 201503
  4. OLAPARIB [Suspect]
     Active Substance: OLAPARIB
     Indication: OVARIAN CANCER STAGE III
     Route: 048

REACTIONS (3)
  - Suicidal ideation [Recovering/Resolving]
  - Disease progression [Fatal]
  - Depression [Recovering/Resolving]

NARRATIVE: CASE EVENT DATE: 201502
